FAERS Safety Report 8784224 (Version 1)
Quarter: 2012Q4

REPORT INFORMATION
  Report Type: 
  Country: US (occurrence: US)
  Receive Date: 20120913
  Receipt Date: 20120913
  Transmission Date: 20130627
  Serious: No
  Sender: FDA-Public Use
  Company Number: US-009507513-1208USA011943

PATIENT

DRUGS (1)
  1. CLARITIN [Suspect]
     Indication: COUGH
     Dosage: UNK, Unknown
     Route: 048

REACTIONS (2)
  - Therapeutic product ineffective for unapproved indication [Unknown]
  - Off label use [Unknown]
